FAERS Safety Report 21784760 (Version 4)
Quarter: 2023Q1

REPORT INFORMATION
  Report Type: Report from Study
  Country: FR (occurrence: FR)
  Receive Date: 20221227
  Receipt Date: 20230327
  Transmission Date: 20230418
  Serious: Yes (Hospitalization)
  Sender: FDA-Public Use
  Company Number: FR-JNJFOC-20220962593

PATIENT
  Age: 21 Year
  Sex: Female
  Weight: 54 kg

DRUGS (7)
  1. ACETAMINOPHEN [Suspect]
     Active Substance: ACETAMINOPHEN
     Indication: Pain
     Dosage: UNK
     Route: 048
  2. SPRAVATO [Suspect]
     Active Substance: ESKETAMINE
     Indication: Depression
     Dosage: 56 MILLIGRAM, Q3.5D, 0.5 WEEK
     Route: 045
     Dates: start: 20220927, end: 20220927
  3. SPRAVATO [Suspect]
     Active Substance: ESKETAMINE
     Dosage: 56 MILLIGRAM, Q3.5D, 0.5 WEEK
     Route: 045
     Dates: start: 20220929, end: 20220929
  4. SPRAVATO [Suspect]
     Active Substance: ESKETAMINE
     Dosage: 56 MILLIGRAM,
     Route: 045
     Dates: start: 2022, end: 20221122
  5. VENLAFAXINE [Concomitant]
     Active Substance: VENLAFAXINE HYDROCHLORIDE
     Indication: Depression
     Dosage: UNK
     Route: 065
     Dates: start: 20210722
  6. LEVOTHYROXINE [Concomitant]
     Active Substance: LEVOTHYROXINE
     Indication: Hypothyroidism
     Dosage: UNK
     Route: 065
     Dates: start: 20190202
  7. LOXAPINE [Concomitant]
     Active Substance: LOXAPINE
     Indication: Insomnia
     Dosage: UNK
     Route: 065
     Dates: start: 20210715

REACTIONS (3)
  - Suicide attempt [Recovering/Resolving]
  - Dissociative disorder [Recovering/Resolving]
  - Drug ineffective [Not Recovered/Not Resolved]

NARRATIVE: CASE EVENT DATE: 20220927
